FAERS Safety Report 8921148 (Version 1)
Quarter: 2012Q4

REPORT INFORMATION
  Report Type: 
  Country: US (occurrence: US)
  Receive Date: 20121122
  Receipt Date: 20121122
  Transmission Date: 20130627
  Serious: Yes (Death, Hospitalization)
  Sender: FDA-Public Use
  Company Number: US-AMGEN-USASP2012073902

PATIENT
  Sex: Male

DRUGS (2)
  1. XGEVA [Suspect]
     Indication: PROSTATE CANCER
  2. LUPRON [Concomitant]
     Indication: PROSTATE CANCER

REACTIONS (4)
  - Death [Fatal]
  - Confusional state [Unknown]
  - Asthenia [Unknown]
  - Hypocalcaemia [Unknown]
